FAERS Safety Report 6760713-3 (Version None)
Quarter: 2010Q2

REPORT INFORMATION
  Report Type: 
  Country: None (occurrence: None)
  Receive Date: 20100607
  Receipt Date: 20100607
  Transmission Date: 20101027
  Serious: Yes (Death)
  Sender: FDA-Public Use
  Company Number: None

PATIENT
  Age: 70 Year
  Sex: Female
  Weight: 74.3899 kg

DRUGS (1)
  1. HEPARIN [Suspect]
     Indication: CORONARY ARTERY BYPASS
     Dates: start: 20100510, end: 20100517

REACTIONS (3)
  - OPERATIVE HAEMORRHAGE [None]
  - SMALL INTESTINAL HAEMORRHAGE [None]
  - THROMBOSIS [None]
